FAERS Safety Report 9720630 (Version 1)
Quarter: 2013Q4

REPORT INFORMATION
  Report Type: Report from Study
  Country: BR (occurrence: BR)
  Receive Date: 20131129
  Receipt Date: 20131129
  Transmission Date: 20140711
  Serious: Yes (Other)
  Sender: FDA-Public Use
  Company Number: PHHY2013BR136053

PATIENT
  Age: 73 Year
  Sex: Male
  Weight: 66.7 kg

DRUGS (6)
  1. DIOVAN [Suspect]
     Indication: HYPERTENSION
     Dosage: 1 DF, (160 MG) DAILY
     Route: 048
     Dates: end: 20120726
  2. DIOVAN [Suspect]
     Dosage: 0.5 DF, (80 MG ) DAILY
     Route: 048
     Dates: start: 201207
  3. PANTOPRAZOLE [Concomitant]
     Indication: GASTRITIS
     Dosage: 40 MG, DAILY
     Route: 048
  4. SOMALGIN [Concomitant]
     Indication: COAGULOPATHY
     Dosage: 100 MG, DAILY
     Route: 048
     Dates: start: 201206
  5. ATORVASTATIN CALCIUM [Concomitant]
     Dosage: 1 DF, DAILY
     Route: 048
     Dates: start: 201206
  6. CARVEDILOL [Concomitant]
     Indication: HYPERTENSION
     Dosage: 2 DF (12.5 MG), DAILY
     Route: 048
     Dates: start: 201206

REACTIONS (5)
  - Vein disorder [Recovered/Resolved]
  - Infarction [Recovered/Resolved]
  - Heart rate increased [Recovered/Resolved]
  - Diabetes mellitus [Not Recovered/Not Resolved]
  - Wrong technique in drug usage process [Unknown]
